FAERS Safety Report 9445470 (Version 1)
Quarter: 2013Q3

REPORT INFORMATION
  Report Type: Report from Study
  Country: US (occurrence: US)
  Receive Date: 20130807
  Receipt Date: 20130807
  Transmission Date: 20140515
  Serious: Yes (Death, Other)
  Sender: FDA-Public Use
  Company Number: US-PFIZER INC-2013225133

PATIENT
  Age: 49 Year
  Sex: Male

DRUGS (1)
  1. MITOXANTRONE HCL [Suspect]
     Indication: SECONDARY PROGRESSIVE MULTIPLE SCLEROSIS
     Dosage: CUMULATIVE DOSE: 119.4 MG/M2
     Route: 042

REACTIONS (2)
  - Carotid artery occlusion [Fatal]
  - Cerebrovascular accident [Fatal]
